FAERS Safety Report 25524898 (Version 2)
Quarter: 2025Q3

REPORT INFORMATION
  Report Type: Spontaneous
  Country: EU (occurrence: EU)
  Receive Date: 20250707
  Receipt Date: 20250715
  Transmission Date: 20251021
  Serious: Yes (Other)
  Sender: MYLAN
  Company Number: EU-MYLANLABS-2025M1055764

PATIENT
  Age: 70 Year
  Sex: Male

DRUGS (12)
  1. ASPIRIN [Suspect]
     Active Substance: ASPIRIN
     Indication: Acute myocardial infarction
  2. ASPIRIN [Suspect]
     Active Substance: ASPIRIN
     Route: 065
  3. ASPIRIN [Suspect]
     Active Substance: ASPIRIN
     Route: 065
  4. ASPIRIN [Suspect]
     Active Substance: ASPIRIN
  5. PREDNISOLONE [Suspect]
     Active Substance: PREDNISOLONE
     Indication: Kounis syndrome
  6. PREDNISOLONE [Suspect]
     Active Substance: PREDNISOLONE
     Route: 065
  7. PREDNISOLONE [Suspect]
     Active Substance: PREDNISOLONE
     Route: 065
  8. PREDNISOLONE [Suspect]
     Active Substance: PREDNISOLONE
  9. INDOMETHACIN [Suspect]
     Active Substance: INDOMETHACIN
     Indication: Gout
  10. INDOMETHACIN [Suspect]
     Active Substance: INDOMETHACIN
     Route: 065
  11. INDOMETHACIN [Suspect]
     Active Substance: INDOMETHACIN
     Route: 065
  12. INDOMETHACIN [Suspect]
     Active Substance: INDOMETHACIN

REACTIONS (1)
  - Kounis syndrome [Unknown]
